FAERS Safety Report 18239122 (Version 6)
Quarter: 2020Q4

REPORT INFORMATION
  Report Type: Spontaneous
  Country: US (occurrence: US)
  Receive Date: 20200907
  Receipt Date: 20201125
  Transmission Date: 20210113
  Serious: Yes (Other)
  Sender: FDA-Public Use
  Company Number: US-GLAXOSMITHKLINE-US2020AMR178709

PATIENT
  Sex: Female

DRUGS (10)
  1. ZEJULA [Suspect]
     Active Substance: NIRAPARIB
     Dosage: 200 MG, QD
     Route: 065
  2. METOPROLOL TARTRATE. [Concomitant]
     Active Substance: METOPROLOL TARTRATE
     Indication: PRODUCT USED FOR UNKNOWN INDICATION
     Dosage: UNK
  3. ZEJULA [Suspect]
     Active Substance: NIRAPARIB
     Indication: FALLOPIAN TUBE CANCER
     Dosage: 2 DF(CAPSULE), QD
     Route: 048
     Dates: start: 20200817
  4. SERTRALINE HYDROCHLORIDE. [Concomitant]
     Active Substance: SERTRALINE HYDROCHLORIDE
     Indication: PRODUCT USED FOR UNKNOWN INDICATION
     Dosage: UNK
  5. ACETAMINOPHEN. [Concomitant]
     Active Substance: ACETAMINOPHEN
     Indication: PRODUCT USED FOR UNKNOWN INDICATION
     Dosage: UNK
  6. LOPERAMIDE HYDROCHLORIDE. [Concomitant]
     Active Substance: LOPERAMIDE HYDROCHLORIDE
     Indication: PRODUCT USED FOR UNKNOWN INDICATION
     Dosage: UNK
  7. METHIMAZOLE. [Concomitant]
     Active Substance: METHIMAZOLE
     Indication: HYPERTHYROIDISM
     Dosage: UNK
  8. ZEJULA [Suspect]
     Active Substance: NIRAPARIB
     Dosage: 200 MG, QD
     Route: 065
  9. ZEJULA [Suspect]
     Active Substance: NIRAPARIB
     Dosage: 200 MG, QD
     Route: 065
  10. VITAMIN B12 [Concomitant]
     Active Substance: CYANOCOBALAMIN
     Indication: PRODUCT USED FOR UNKNOWN INDICATION
     Dosage: UNK

REACTIONS (20)
  - White blood cell count decreased [Unknown]
  - Influenza like illness [Unknown]
  - Nausea [Recovering/Resolving]
  - Renal impairment [Not Recovered/Not Resolved]
  - Platelet count decreased [Unknown]
  - Abdominal discomfort [Unknown]
  - Blood pressure increased [Unknown]
  - Osteoporosis [Unknown]
  - Asthenia [Unknown]
  - Product dose omission issue [Unknown]
  - Hyperthyroidism [Unknown]
  - Arthralgia [Unknown]
  - Abdominal distension [Unknown]
  - Gastrointestinal pain [Unknown]
  - Somnolence [Unknown]
  - Arthritis [Unknown]
  - Pain [Unknown]
  - Discomfort [Unknown]
  - Blood electrolytes decreased [Unknown]
  - Myalgia [Not Recovered/Not Resolved]
